FAERS Safety Report 7605285-6 (Version None)
Quarter: 2011Q3

REPORT INFORMATION
  Report Type: 
  Country: None (occurrence: None)
  Receive Date: 20110713
  Receipt Date: 20110627
  Transmission Date: 20111222
  Serious: Yes (Life-Threatening, Hospitalization)
  Sender: FDA-Public Use
  Company Number: US-BAYER-2011-050948

PATIENT
  Age: 64 Year
  Sex: Female
  Weight: 68.6 kg

DRUGS (21)
  1. ZESTRIL [Concomitant]
     Dosage: 20 MG, BID
     Route: 048
  2. PREVACID [Concomitant]
     Dosage: 30 MG, QD
     Route: 048
  3. GABAPENTIN [Concomitant]
     Dosage: 300 MG, QID
     Route: 048
  4. ZOFRAN [Concomitant]
     Indication: NAUSEA
     Dosage: UNK UNK, PRN
     Route: 048
  5. MS CONTIN [Concomitant]
     Dosage: 30 MG, BID
     Route: 048
  6. COMPAZINE [Concomitant]
     Indication: NAUSEA
     Dosage: UNK, PRN
     Route: 048
  7. AVAPRO [Concomitant]
     Dosage: 300, QD
     Route: 048
  8. MAGNESIUM [Concomitant]
     Dosage: 500 MG, BID
     Route: 048
  9. CARBOPLATIN [Suspect]
  10. LIDOCAINE [Concomitant]
     Dosage: 2-4 HOURS, PRN
     Route: 048
  11. VICODIN [Concomitant]
     Dosage: 1 DF, 6-8 HOURS AS NEEDED
     Route: 048
  12. XANAX [Concomitant]
     Dosage: 1 MG, 4-6 HOURS AS NEEDED
     Route: 048
  13. ZOFRAN [Concomitant]
     Indication: VOMITING
  14. SORAFENIB (RAF KINASE INHIBITOR) [Suspect]
     Indication: HEAD AND NECK CANCER
     Dosage: 400 MG, BID
     Route: 048
  15. DEXAMETHASONE [Concomitant]
  16. PACLITAXEL [Suspect]
  17. CLARITIN [Concomitant]
     Dosage: 10 MG, QD
     Route: 048
  18. NORVASC [Concomitant]
     Dosage: 5 MG, QD
     Route: 048
  19. TENORMIN [Concomitant]
     Dosage: 100, BID
     Route: 048
  20. NORCO [Concomitant]
     Dosage: TWO TIMES DAILY AS NEEDED
     Route: 048
  21. AMBIEN [Concomitant]
     Dosage: 5 MG,QHS PRN
     Route: 048

REACTIONS (5)
  - NECK PAIN [None]
  - CONFUSIONAL STATE [None]
  - FEBRILE NEUTROPENIA [None]
  - PNEUMONIA [None]
  - LOCAL SWELLING [None]
